FAERS Safety Report 5087036-5 (Version None)
Quarter: 2006Q3

REPORT INFORMATION
  Report Type: 
  Country: None (occurrence: None)
  Receive Date: 20060821
  Receipt Date: 20060803
  Transmission Date: 20061208
  Serious: Yes (Other)
  Sender: FDA-Public Use
  Company Number: 29718

PATIENT
  Age: 62 Year
  Sex: Female

DRUGS (5)
  1. ALDARA [Suspect]
     Indication: ACTINIC KERATOSIS
     Dosage: 1 SACHET, 3 IN 1 WEEK(S)), TOPICAL
     Route: 061
     Dates: start: 20060621
  2. ALDARA [Suspect]
     Indication: HYPERTENSION
     Dosage: 1 SACHET, 3 IN 1 WEEK(S)), TOPICAL
     Route: 061
     Dates: start: 20060621
  3. LIPITOR [Suspect]
     Indication: BLOOD CHOLESTEROL INCREASED
  4. LEVOXYL [Suspect]
     Indication: HYPOTHYROIDISM
  5. HYZAAR [Suspect]
     Indication: HYPERTENSION
     Dosage: 1 SACHET,3 IN 1 WK, TOPICAL
     Route: 061
     Dates: start: 20060621

REACTIONS (13)
  - APPLICATION SITE ERYTHEMA [None]
  - APPLICATION SITE IRRITATION [None]
  - APPLICATION SITE PAIN [None]
  - APPLICATION SITE PRURITUS [None]
  - APPLICATION SITE REACTION [None]
  - DIZZINESS [None]
  - HYPOTENSION [None]
  - INFLUENZA LIKE ILLNESS [None]
  - INSOMNIA [None]
  - MUSCULAR WEAKNESS [None]
  - MYALGIA [None]
  - SCAB [None]
  - VISUAL DISTURBANCE [None]
